FAERS Safety Report 7115405-8 (Version None)
Quarter: 2010Q4

REPORT INFORMATION
  Report Type: 
  Country: None (occurrence: None)
  Receive Date: 20101122
  Receipt Date: 20101112
  Transmission Date: 20110411
  Serious: Yes (Hospitalization, Other)
  Sender: FDA-Public Use
  Company Number: US-AMGEN-USASP2010004697

PATIENT

DRUGS (1)
  1. ENBREL [Suspect]
     Indication: RHEUMATOID ARTHRITIS
     Dosage: 25 MG, 2 TIMES/WK
     Dates: start: 20001001

REACTIONS (13)
  - ALCOHOL ABUSE [None]
  - DEPRESSION [None]
  - DETOXIFICATION [None]
  - DIARRHOEA [None]
  - FAECES DISCOLOURED [None]
  - FALL [None]
  - HEADACHE [None]
  - HOSPITALISATION [None]
  - MELAENA [None]
  - MUSCULAR WEAKNESS [None]
  - NAUSEA [None]
  - PAIN [None]
  - PRODUCT QUALITY ISSUE [None]
